FAERS Safety Report 21699985 (Version 1)
Quarter: 2022Q4

REPORT INFORMATION
  Report Type: Report from Study
  Country: US (occurrence: US)
  Receive Date: 20221208
  Receipt Date: 20221208
  Transmission Date: 20230112
  Serious: No
  Sender: FDA-Public Use
  Company Number: US-002147023-NVSC2022US284684

PATIENT
  Sex: Male

DRUGS (1)
  1. COSENTYX [Suspect]
     Active Substance: SECUKINUMAB
     Indication: Product used for unknown indication
     Dosage: 150 MG, QMO (INJECT ONE SHOT INCE A MONTH)
     Route: 030
     Dates: start: 20221024, end: 20221124

REACTIONS (3)
  - Rash [Unknown]
  - Joint stiffness [Unknown]
  - Incorrect route of product administration [Unknown]
